FAERS Safety Report 16673676 (Version 2)
Quarter: 2019Q3

REPORT INFORMATION
  Report Type: Spontaneous
  Country: RU (occurrence: RU)
  Receive Date: 20190806
  Receipt Date: 20190903
  Transmission Date: 20191004
  Serious: Yes (Hospitalization)
  Sender: FDA-Public Use
  Company Number: RU-TEVA-2019-RU-1087358

PATIENT
  Age: 4 Year
  Sex: Female

DRUGS (1)
  1. METHOJECT [Suspect]
     Active Substance: METHOTREXATE
     Route: 065

REACTIONS (2)
  - Toxic encephalopathy [Unknown]
  - Coma [Unknown]
